FAERS Safety Report 15891173 (Version 2)
Quarter: 2019Q1

REPORT INFORMATION
  Report Type: Spontaneous
  Country: PT (occurrence: PT)
  Receive Date: 20190130
  Receipt Date: 20190205
  Transmission Date: 20190417
  Serious: Yes (Other)
  Sender: FDA-Public Use
  Company Number: PT-MYLANLABS-2019M1008061

PATIENT
  Age: 56 Year
  Sex: Female

DRUGS (10)
  1. PROPOFOL. [Concomitant]
     Active Substance: PROPOFOL
     Indication: ANAESTHESIA
     Dosage: 150 MILLIGRAM, UNK
     Route: 042
  2. PATENT BLUE V CI 42051 E131 [Suspect]
     Active Substance: PATENT BLUE V
     Indication: SURGERY
     Dosage: UNK
     Route: 058
  3. TAMOXIFEN [Concomitant]
     Active Substance: TAMOXIFEN
     Dosage: UNK
  4. ESOMEPRAZOLE. [Concomitant]
     Active Substance: ESOMEPRAZOLE MAGNESIUM
     Dosage: UNK
  5. DEXAMETHASONE. [Concomitant]
     Active Substance: DEXAMETHASONE
     Indication: ANAESTHESIA
     Dosage: 4 MILLIGRAM, UNK
     Route: 042
  6. ESCITALOPRAM [Concomitant]
     Active Substance: ESCITALOPRAM OXALATE
     Dosage: UNK
  7. CIPROFLOXACIN. [Suspect]
     Active Substance: CIPROFLOXACIN
     Indication: ANTIBIOTIC PROPHYLAXIS
     Dosage: UNK
     Route: 042
  8. GABAPENTIN. [Concomitant]
     Active Substance: GABAPENTIN
     Dosage: UNK
  9. ROCURONIUM [Concomitant]
     Active Substance: ROCURONIUM BROMIDE
     Indication: ANAESTHESIA
     Dosage: UNK
  10. FENTANYL. [Concomitant]
     Active Substance: FENTANYL
     Indication: ANAESTHESIA
     Dosage: 0.15 MILLIGRAM, UNK
     Route: 042

REACTIONS (4)
  - Urticaria papular [Recovered/Resolved]
  - Feeling hot [Recovered/Resolved]
  - Hypotension [Recovered/Resolved]
  - Drug hypersensitivity [Unknown]
